FAERS Safety Report 14785112 (Version 1)
Quarter: 2018Q2

REPORT INFORMATION
  Report Type: Spontaneous
  Country: GB (occurrence: GB)
  Receive Date: 20180420
  Receipt Date: 20180420
  Transmission Date: 20180711
  Serious: Yes (Other)
  Sender: FDA-Public Use
  Company Number: GB-PFIZER INC-2018154007

PATIENT
  Age: 45 Year
  Sex: Male
  Weight: 97 kg

DRUGS (14)
  1. PHENYTOIN SODIUM. [Concomitant]
     Active Substance: PHENYTOIN SODIUM
     Dosage: 4 DF, 1X/DAY
     Dates: start: 20170209
  2. FULTIUM D3 [Concomitant]
     Active Substance: CHOLECALCIFEROL
     Dosage: 3 DF, 1X/DAY
     Dates: start: 20180226
  3. KETOCONAZOLE. [Concomitant]
     Active Substance: KETOCONAZOLE
     Dosage: 2 DF, WEEKLY
     Dates: start: 20170518
  4. ZONISAMIDE. [Concomitant]
     Active Substance: ZONISAMIDE
     Dosage: 6 DF, 1X/DAY
     Dates: start: 20170209
  5. BENDROFLUMETHIAZIDE [Concomitant]
     Active Substance: BENDROFLUMETHIAZIDE
     Dosage: 1 DF, 1X/DAY (EACH MORNING)
     Dates: start: 20170209
  6. LISINOPRIL. [Concomitant]
     Active Substance: LISINOPRIL
     Dosage: 1 DF, 1X/DAY
     Dates: start: 20170209
  7. GLUCAGON. [Concomitant]
     Active Substance: GLUCAGON
     Dosage: FOLLOW THE PACK INSTRUCTIONS
     Dates: start: 20170209
  8. FLUVASTATIN [Concomitant]
     Active Substance: FLUVASTATIN SODIUM
     Dosage: 2 DF, 1X/DAY
     Dates: start: 20170209
  9. INSULIN ASPART [Concomitant]
     Active Substance: INSULIN ASPART
     Dosage: AS PER DOSAGE FOR NORMAL ADJUSTMENT.
     Dates: start: 20170209
  10. GLUCOSE [Concomitant]
     Active Substance: DEXTROSE
     Dosage: AS DIRECTED
     Dates: start: 20170209
  11. QUININE [Concomitant]
     Active Substance: QUININE
     Dosage: 2 DF, 1X/DAY
     Dates: start: 20170209
  12. AMLODIPINE BESILATE [Suspect]
     Active Substance: AMLODIPINE BESYLATE
     Dosage: UNK
     Dates: start: 20180305
  13. CLOBAZAM [Concomitant]
     Active Substance: CLOBAZAM
     Dosage: 3 DF, 1X/DAY (ONE IN THE MORNING AND TWO AT NIGHT)
     Dates: start: 20170209, end: 20180226
  14. LANTUS [Concomitant]
     Active Substance: INSULIN GLARGINE
     Dosage: 40 IU, 1X/DAY (IN THE MORNING AND EVENINGS)
     Dates: start: 20170209

REACTIONS (1)
  - Anaphylactic reaction [Unknown]
